FAERS Safety Report 4428408-9 (Version None)
Quarter: 2004Q3

REPORT INFORMATION
  Report Type: 
  Country: None (occurrence: None)
  Receive Date: 20040818
  Receipt Date: 20040810
  Transmission Date: 20050211
  Serious: Yes (Other)
  Sender: FDA-Public Use
  Company Number: 200413015FR

PATIENT
  Sex: Male

DRUGS (1)
  1. RILUTEK [Suspect]

REACTIONS (1)
  - INTRACRANIAL PRESSURE INCREASED [None]
